FAERS Safety Report 7586480-1 (Version None)
Quarter: 2011Q2

REPORT INFORMATION
  Report Type: 
  Country: None (occurrence: None)
  Receive Date: 20110630
  Receipt Date: 20110630
  Transmission Date: 20111010
  Serious: Yes (Life-Threatening, Disabling)
  Sender: FDA-Public Use
  Company Number: None

PATIENT
  Sex: Female
  Weight: 86.1834 kg

DRUGS (1)
  1. LIPITOR [Suspect]
     Indication: BLOOD CHOLESTEROL INCREASED
     Dosage: DAILY ORAL
     Route: 048
     Dates: start: 19900101, end: 20090101

REACTIONS (8)
  - AGEUSIA [None]
  - FATIGUE [None]
  - ASTHENIA [None]
  - BALANCE DISORDER [None]
  - LETHARGY [None]
  - DYSSTASIA [None]
  - MUSCLE ATROPHY [None]
  - WEIGHT DECREASED [None]
